FAERS Safety Report 12325549 (Version 2)
Quarter: 2016Q2

REPORT INFORMATION
  Report Type: Spontaneous
  Country: SI (occurrence: SI)
  Receive Date: 20160503
  Receipt Date: 20160513
  Transmission Date: 20160815
  Serious: No
  Sender: FDA-Public Use
  Company Number: SI-ALLERGAN-1655444US

PATIENT
  Age: 56 Year
  Sex: Female
  Weight: 60 kg

DRUGS (1)
  1. ESMYA [Suspect]
     Active Substance: ULIPRISTAL ACETATE
     Indication: LEIOMYOMA
     Dosage: 1 DF, QD
     Route: 048
     Dates: start: 20151217, end: 20160317

REACTIONS (3)
  - Urinary incontinence [Recovered/Resolved]
  - Off label use [Unknown]
  - Vertigo [Recovered/Resolved]

NARRATIVE: CASE EVENT DATE: 20160301
